FAERS Safety Report 7865065-3 (Version None)
Quarter: 2011Q4

REPORT INFORMATION
  Report Type: 
  Country: None (occurrence: None)
  Receive Date: 20111028
  Receipt Date: 20101008
  Transmission Date: 20120403
  Serious: No
  Sender: FDA-Public Use
  Company Number: US-GLAXOSMITHKLINE-A0885643A

PATIENT
  Age: 62 Year
  Sex: Male

DRUGS (6)
  1. WELCHOL [Concomitant]
  2. SPIRIVA [Suspect]
  3. BLOOD PRESSURE MEDICATION [Concomitant]
  4. CRESTOR [Concomitant]
  5. ADVAIR DISKUS 100/50 [Suspect]
     Indication: CHRONIC OBSTRUCTIVE PULMONARY DISEASE
     Dosage: 1PUFF TWICE PER DAY
     Route: 055
     Dates: start: 20010101, end: 20100801
  6. ZETIA [Concomitant]

REACTIONS (1)
  - CANDIDIASIS [None]
